FAERS Safety Report 17923985 (Version 1)
Quarter: 2020Q2

REPORT INFORMATION
  Report Type: Spontaneous
  Country: CN (occurrence: CN)
  Receive Date: 20200622
  Receipt Date: 20200622
  Transmission Date: 20200714
  Serious: Yes (Other)
  Sender: FDA-Public Use
  Company Number: CN-FRESENIUS KABI-FK202006062

PATIENT
  Age: 79 Year
  Sex: Male
  Weight: 62.7 kg

DRUGS (1)
  1. LIPOVENOES MCT 20% [Suspect]
     Active Substance: EGG PHOSPHOLIPIDS\GLYCERIN\MEDIUM-CHAIN TRIGLYCERIDES\SOYBEAN OIL
     Indication: NUTRITIONAL SUPPLEMENTATION
     Dosage: 250ML,QD
     Route: 041
     Dates: start: 20200607, end: 20200608

REACTIONS (4)
  - Chills [Recovered/Resolved]
  - Temperature intolerance [Recovered/Resolved]
  - Heart rate increased [Unknown]
  - Pyrexia [Recovering/Resolving]

NARRATIVE: CASE EVENT DATE: 20200607
